FAERS Safety Report 8001874-8 (Version None)
Quarter: 2011Q4

REPORT INFORMATION
  Report Type: 
  Country: None (occurrence: None)
  Receive Date: 20111222
  Receipt Date: 20111214
  Transmission Date: 20120403
  Serious: Yes (Other)
  Sender: FDA-Public Use
  Company Number: US-SANOFI-AVENTIS-2011SA082160

PATIENT
  Age: 47 Year
  Sex: Male
  Weight: 78 kg

DRUGS (7)
  1. PLAVIX [Suspect]
     Indication: STENT PLACEMENT
     Route: 048
     Dates: start: 20091201, end: 20111201
  2. PLAVIX [Suspect]
     Route: 048
     Dates: start: 20091201, end: 20111201
  3. LISINOPRIL [Concomitant]
  4. ATENOLOL [Concomitant]
  5. PRAVASTATIN [Concomitant]
  6. METFORMIN HCL [Suspect]
  7. CELEBREX [Concomitant]

REACTIONS (9)
  - HEART RATE INCREASED [None]
  - VISUAL IMPAIRMENT [None]
  - DIZZINESS [None]
  - CORONARY ARTERY STENOSIS [None]
  - COLD SWEAT [None]
  - STRESS [None]
  - CHEST PAIN [None]
  - NAUSEA [None]
  - DYSPEPSIA [None]
